FAERS Safety Report 15610661 (Version 1)
Quarter: 2018Q4

REPORT INFORMATION
  Report Type: Spontaneous
  Country: US (occurrence: US)
  Receive Date: 20181113
  Receipt Date: 20181113
  Transmission Date: 20190205
  Serious: No
  Sender: FDA-Public Use
  Company Number: US-ROCHE-2092374

PATIENT
  Sex: Female
  Weight: 53.57 kg

DRUGS (6)
  1. AMLODIPINE [Concomitant]
     Active Substance: AMLODIPINE BESYLATE
     Route: 048
     Dates: start: 20180212
  2. LAMIVUDINE. [Concomitant]
     Active Substance: LAMIVUDINE
     Route: 048
     Dates: start: 20180313
  3. VIREAD [Concomitant]
     Active Substance: TENOFOVIR DISOPROXIL FUMARATE
     Route: 048
     Dates: start: 20180212
  4. ALBUTEROL SULFATE. [Concomitant]
     Active Substance: ALBUTEROL SULFATE
     Dosage: INHALATION
     Route: 065
     Dates: start: 20180212
  5. HERCEPTIN [Suspect]
     Active Substance: TRASTUZUMAB
     Indication: GASTRIC CANCER
     Dosage: INFUSE 310 MG INTRAVENOUSLY
     Route: 042
     Dates: start: 20180213
  6. SYMBICORT [Concomitant]
     Active Substance: BUDESONIDE\FORMOTEROL FUMARATE DIHYDRATE
     Dosage: INHALATION
     Route: 065
     Dates: start: 20180212

REACTIONS (1)
  - Malaise [Unknown]
